FAERS Safety Report 20713864 (Version 1)
Quarter: 2022Q2

REPORT INFORMATION
  Report Type: Spontaneous
  Country: US (occurrence: None)
  Receive Date: 20220414
  Receipt Date: 20220414
  Transmission Date: 20220720
  Serious: Yes (Other)
  Sender: FDA-Public Use
  Company Number: None

PATIENT
  Age: 12 Year
  Sex: Female
  Weight: 33.6 kg

DRUGS (2)
  1. GLYCOPYRROLATE [Suspect]
     Active Substance: GLYCOPYRROLATE
     Indication: Salivary hypersecretion
     Dosage: FREQUENCY : TWICE A DAY;?
  2. GLYCOPYRROLATE [Suspect]
     Active Substance: GLYCOPYRROLATE
     Indication: Salivary hypersecretion
     Dosage: FREQUENCY : TWICE A DAY;?

REACTIONS (5)
  - Urticaria [None]
  - Urine output decreased [None]
  - Rash macular [None]
  - Erythema [None]
  - Oxygen saturation decreased [None]

NARRATIVE: CASE EVENT DATE: 20220329
